FAERS Safety Report 4703685-5 (Version None)
Quarter: 2005Q2

REPORT INFORMATION
  Report Type: 
  Country: None (occurrence: None)
  Receive Date: 20050628
  Receipt Date: 20050608
  Transmission Date: 20051028
  Serious: Yes (Hospitalization)
  Sender: FDA-Public Use
  Company Number: US_0505117594

PATIENT
  Age: 58 Year
  Sex: Female
  Weight: 75 kg

DRUGS (12)
  1. ZYPREXA [Suspect]
     Indication: BIPOLAR DISORDER
     Dosage: 50 MG DAY
     Dates: start: 20020103, end: 20040730
  2. ARICEPT [Concomitant]
  3. XANAX [Concomitant]
  4. FIORICET [Concomitant]
  5. LOPRESSOR [Concomitant]
  6. PLAVIX [Concomitant]
  7. NITRO-DUR [Concomitant]
  8. LANOXIN [Concomitant]
  9. CAPOTEN [Concomitant]
  10. LASIX [Concomitant]
  11. FENTANYL [Concomitant]
  12. NEXIUM [Concomitant]

REACTIONS (22)
  - BLADDER PROLAPSE [None]
  - BLOOD CHLORIDE DECREASED [None]
  - BLOOD CREATINE PHOSPHOKINASE INCREASED [None]
  - BLOOD GLUCOSE INCREASED [None]
  - BLOOD TRIGLYCERIDES INCREASED [None]
  - BUNDLE BRANCH BLOCK LEFT [None]
  - CARDIAC FAILURE CONGESTIVE [None]
  - CHRONIC OBSTRUCTIVE PULMONARY DISEASE [None]
  - DIABETES MELLITUS INSULIN-DEPENDENT [None]
  - ELECTROCARDIOGRAM QRS COMPLEX PROLONGED [None]
  - FATIGUE [None]
  - GLUCOSE URINE PRESENT [None]
  - HYPONATRAEMIA [None]
  - INFLUENZA [None]
  - LABORATORY TEST ABNORMAL [None]
  - MYOCARDIAL INFARCTION [None]
  - NEUROGENIC BLADDER [None]
  - PNEUMONIA [None]
  - PRESCRIBED OVERDOSE [None]
  - RESPIRATORY FAILURE [None]
  - URINARY RETENTION [None]
  - VISION BLURRED [None]
